FAERS Safety Report 4451472-8 (Version None)
Quarter: 2004Q3

REPORT INFORMATION
  Report Type: 
  Country: None (occurrence: None)
  Receive Date: 20040915
  Receipt Date: 20040907
  Transmission Date: 20050211
  Serious: Yes (Other)
  Sender: FDA-Public Use
  Company Number: 2004232296US

PATIENT
  Age: 57 Year
  Sex: Female

DRUGS (6)
  1. PROVERA (MEDROXYPROFGESTERONE ACETATE) TABLET, 2.5-10 MG [Suspect]
     Dates: start: 19930624, end: 19980714
  2. PREMARIN [Suspect]
     Dates: start: 19930624, end: 19980727
  3. PREMARIN H-C VAGINAL CREAM [Suspect]
     Dates: start: 19970908, end: 19970908
  4. ESTRADERM [Suspect]
     Dates: start: 19941101, end: 19980714
  5. ESTRIN (ESTRADIOL, ESTRADIOL) RING [Suspect]
     Dates: start: 19991213, end: 20010803
  6. CYCRIN [Suspect]
     Dates: start: 19941121, end: 19980714

REACTIONS (1)
  - CEREBROVASCULAR ACCIDENT [None]
